FAERS Safety Report 6206893-X (Version None)
Quarter: 2009Q2

REPORT INFORMATION
  Report Type: 
  Country: None (occurrence: None)
  Receive Date: 20090528
  Receipt Date: 20090519
  Transmission Date: 20091009
  Serious: Yes (Other)
  Sender: FDA-Public Use
  Company Number: A0712746A

PATIENT
  Age: 85 Year
  Sex: Female

DRUGS (7)
  1. ADVAIR HFA [Suspect]
     Indication: CHRONIC OBSTRUCTIVE PULMONARY DISEASE
     Dosage: 1PUFF TWICE PER DAY
     Route: 055
     Dates: start: 20080101
  2. ADVAIR HFA [Suspect]
     Dosage: 1PUFF TWICE PER DAY
     Route: 055
     Dates: start: 20080201, end: 20080201
  3. SPIRIVA [Suspect]
  4. CLARITIN [Concomitant]
  5. TYLENOL [Concomitant]
  6. MUCINEX [Concomitant]
  7. ALBUTEROL [Concomitant]

REACTIONS (6)
  - BRONCHITIS [None]
  - CHOKING [None]
  - COUGH [None]
  - DRY EYE [None]
  - RESPIRATION ABNORMAL [None]
  - VISION BLURRED [None]
